FAERS Safety Report 16235259 (Version 3)
Quarter: 2019Q3

REPORT INFORMATION
  Report Type: Spontaneous
  Country: US (occurrence: US)
  Receive Date: 20190424
  Receipt Date: 20190930
  Transmission Date: 20191004
  Serious: Yes (Hospitalization, Other)
  Sender: FDA-Public Use
  Company Number: US-PFIZER INC-2019170323

PATIENT
  Age: 72 Year
  Sex: Female
  Weight: 99.79 kg

DRUGS (4)
  1. XALKORI [Suspect]
     Active Substance: CRIZOTINIB
     Dosage: 200 MG, 2X/DAY
     Route: 048
  2. PREDNISONE. [Suspect]
     Active Substance: PREDNISONE
     Dosage: UNK
  3. XALKORI [Suspect]
     Active Substance: CRIZOTINIB
     Dosage: 200 MG, 2X/DAY
     Route: 048
  4. XALKORI [Suspect]
     Active Substance: CRIZOTINIB
     Indication: NON-SMALL CELL LUNG CANCER STAGE IV
     Dosage: 250 MG, 2X/DAY
     Route: 048
     Dates: start: 201810

REACTIONS (6)
  - Nausea [Recovering/Resolving]
  - Vomiting [Recovering/Resolving]
  - Dry eye [Recovering/Resolving]
  - Visual impairment [Recovering/Resolving]
  - Diarrhoea [Recovering/Resolving]
  - Oesophageal ulcer [Recovering/Resolving]

NARRATIVE: CASE EVENT DATE: 201810
